FAERS Safety Report 13387355 (Version 1)
Quarter: 2017Q1

REPORT INFORMATION
  Report Type: Spontaneous
  Country: FR (occurrence: FR)
  Receive Date: 20170330
  Receipt Date: 20170330
  Transmission Date: 20170429
  Serious: Yes (Hospitalization)
  Sender: FDA-Public Use
  Company Number: FR-B. BRAUN MEDICAL INC.-1064850

PATIENT
  Age: 75 Year
  Sex: Male

DRUGS (19)
  1. LARMABAK [Concomitant]
  2. NIMOTOP [Concomitant]
     Active Substance: NIMODIPINE
     Route: 048
     Dates: start: 20160920
  3. SODIUM CHLORIDE. [Suspect]
     Active Substance: SODIUM CHLORIDE
     Dates: start: 20160920, end: 20160922
  4. OMEPRAZOLE. [Concomitant]
     Active Substance: OMEPRAZOLE
  5. PARACETAMOL [Concomitant]
     Active Substance: ACETAMINOPHEN
     Route: 042
     Dates: start: 20160917, end: 20160917
  6. ACUPAM (NEFOPAM) [Concomitant]
     Dates: start: 20160917, end: 20160919
  7. IBUPROFEN. [Concomitant]
     Active Substance: IBUPROFEN
  8. KESTIN (EBASTINE) [Concomitant]
  9. PARACETAMOL [Concomitant]
     Active Substance: ACETAMINOPHEN
     Route: 042
     Dates: start: 20160918, end: 20160918
  10. PARACETAMOL [Concomitant]
     Active Substance: ACETAMINOPHEN
  11. AMLODIPINE [Concomitant]
     Active Substance: AMLODIPINE BESYLATE
  12. DEXTROSE. [Suspect]
     Active Substance: DEXTROSE
     Route: 041
  13. KARDEGIC [Concomitant]
     Active Substance: ASPIRIN LYSINE
  14. BETAMETHASONE. [Concomitant]
     Active Substance: BETAMETHASONE
  15. ERYFLUID (ERITHROMYCIN) [Concomitant]
  16. NIMOTOP [Concomitant]
     Active Substance: NIMODIPINE
     Dates: start: 20160917, end: 20160917
  17. POTASSIUM CHLORIDE. [Concomitant]
     Active Substance: POTASSIUM CHLORIDE
     Route: 042
     Dates: start: 20160921, end: 20160922
  18. GELOFUSINE 4% [Suspect]
     Active Substance: SODIUM CHLORIDE/SODIUM HYDROXIDE/SUCCINYLATED GELATIN
     Dates: start: 20160918, end: 20160920
  19. NIMOTOP [Concomitant]
     Active Substance: NIMODIPINE
     Route: 042
     Dates: start: 20160918, end: 20160919

REACTIONS (6)
  - Acute pulmonary oedema [Recovered/Resolved]
  - Respiratory distress [None]
  - Blood pressure increased [None]
  - Fluid overload [None]
  - Subarachnoid haemorrhage [None]
  - Respiratory alkalosis [None]
